FAERS Safety Report 9868261 (Version 1)
Quarter: 2014Q1

REPORT INFORMATION
  Report Type: Report from Study
  Country: US (occurrence: US)
  Receive Date: 20140204
  Receipt Date: 20140204
  Transmission Date: 20141002
  Serious: Yes (Other)
  Sender: FDA-Public Use
  Company Number: US-BRISTOL-MYERS SQUIBB COMPANY-20084026

PATIENT
  Age: 57 Year
  Sex: Female
  Weight: 52.15 kg

DRUGS (1)
  1. ORENCIA [Suspect]
     Indication: RHEUMATOID ARTHRITIS
     Dosage: TOOK ORENCIA SQ IN PAST
     Route: 042

REACTIONS (9)
  - Oropharyngeal pain [Unknown]
  - Swollen tongue [Unknown]
  - Tongue ulceration [Unknown]
  - Headache [Unknown]
  - Nausea [Unknown]
  - Ear pain [Unknown]
  - Chest discomfort [Unknown]
  - Dyspnoea [Unknown]
  - Rash macular [Unknown]
